FAERS Safety Report 8247455-2 (Version None)
Quarter: 2012Q1

REPORT INFORMATION
  Report Type: 
  Country: None (occurrence: None)
  Receive Date: 20120316
  Receipt Date: 20081107
  Transmission Date: 20120608
  Serious: Yes (Other)
  Sender: FDA-Public Use
  Company Number: PHEH2008US10089

PATIENT

DRUGS (2)
  1. ANTICOAGULANTS (ANTICOAGULANTS) [Concomitant]
  2. TEKTURNA [Suspect]
     Indication: HYPERTENSION
     Dosage: 150 MG, QD, ORAL
     Route: 048
     Dates: start: 20080801, end: 20081107

REACTIONS (3)
  - EYE SWELLING [None]
  - LIP SWELLING [None]
  - ANGIOEDEMA [None]
